FAERS Safety Report 22014432 (Version 1)
Quarter: 2023Q1

REPORT INFORMATION
  Report Type: Other
  Country: CA (occurrence: CA)
  Receive Date: 20230221
  Receipt Date: 20230221
  Transmission Date: 20230417
  Serious: Yes (Hospitalization, Other)
  Sender: FDA-Public Use
  Company Number: CA-APOTEX-2023AP003486

PATIENT
  Sex: Female

DRUGS (1)
  1. IMATINIB [Suspect]
     Active Substance: IMATINIB
     Indication: Chronic myeloid leukaemia
     Dosage: UNK
     Route: 065

REACTIONS (6)
  - Drug intolerance [Unknown]
  - Acute kidney injury [Unknown]
  - Hypokalaemia [Unknown]
  - Hyponatraemia [Unknown]
  - Diarrhoea [Unknown]
  - Vomiting [Unknown]
